FAERS Safety Report 20885412 (Version 1)
Quarter: 2022Q2

REPORT INFORMATION
  Report Type: Report from Study
  Country: IT (occurrence: IT)
  Receive Date: 20220527
  Receipt Date: 20220527
  Transmission Date: 20220721
  Serious: Yes (Hospitalization, Other)
  Sender: FDA-Public Use
  Company Number: None

PATIENT
  Age: 6 Year
  Sex: Male
  Weight: 22 kg

DRUGS (3)
  1. IFOSFAMIDE [Suspect]
     Active Substance: IFOSFAMIDE
     Indication: Rhabdomyosarcoma
     Dosage: 1260 MG, CYCLICAL, ROUTE:INTRAVENOUS OTHERWISE NOT SPECIFIED
     Route: 050
     Dates: start: 20220129, end: 20220315
  2. VINCRISTINE [Concomitant]
     Active Substance: VINCRISTINE
     Indication: Rhabdomyosarcoma
     Dosage: ROUTE: INTRAVENOUS OTHERWISE NOT SPECIFIED
     Route: 050
     Dates: start: 20220129, end: 20220315
  3. COSMEGEN [Concomitant]
     Active Substance: DACTINOMYCIN
     Indication: Rhabdomyosarcoma
     Dosage: ROUTE: INTRAVENOUS OTHERWISE NOT SPECIFIED
     Route: 050
     Dates: start: 20220129, end: 20220315

REACTIONS (4)
  - Musculoskeletal stiffness [Recovered/Resolved]
  - Oxygen saturation decreased [Recovered/Resolved]
  - Gaze palsy [Recovered/Resolved]
  - Petit mal epilepsy [Recovered/Resolved]

NARRATIVE: CASE EVENT DATE: 20220219
